FAERS Safety Report 9701483 (Version 1)
Quarter: 2013Q4

REPORT INFORMATION
  Report Type: Spontaneous
  Country: US (occurrence: US)
  Receive Date: 20131121
  Receipt Date: 20131121
  Transmission Date: 20140711
  Serious: Yes (Other)
  Sender: FDA-Public Use
  Company Number: US-ASTRAZENECA-2013SE84125

PATIENT
  Age: 72 Year
  Sex: Male
  Weight: 89.4 kg

DRUGS (7)
  1. CRESTOR [Suspect]
     Indication: HYPERCHOLESTEROLAEMIA
     Route: 048
  2. FELODIPINE [Suspect]
     Indication: HYPERTENSION
  3. HCTZ [Concomitant]
     Indication: HYPERTENSION
     Route: 048
  4. RAMIPRIL [Concomitant]
     Indication: HYPERTENSION
  5. ASPIRIN [Concomitant]
     Indication: ANTICOAGULANT THERAPY
  6. VITAMIN D [Concomitant]
  7. VITAMIN B6 [Concomitant]
     Indication: VITAMIN SUPPLEMENTATION

REACTIONS (10)
  - Plasma cell myeloma [Unknown]
  - Large intestine polyp [Unknown]
  - Tendon pain [Not Recovered/Not Resolved]
  - Musculoskeletal stiffness [Not Recovered/Not Resolved]
  - Glaucoma [Unknown]
  - Nervous system disorder [Unknown]
  - Hypoaesthesia [Not Recovered/Not Resolved]
  - Arthralgia [Not Recovered/Not Resolved]
  - Pain in extremity [Not Recovered/Not Resolved]
  - Blood cholesterol increased [Unknown]
